FAERS Safety Report 5632470-5 (Version None)
Quarter: 2008Q1

REPORT INFORMATION
  Report Type: 
  Country: None (occurrence: None)
  Receive Date: 20080131
  Receipt Date: 20071005
  Transmission Date: 20080703
  Serious: No
  Sender: FDA-Public Use
  Company Number: 163-21880-07100372

PATIENT
  Age: 68 Year
  Sex: Female

DRUGS (2)
  1. REVLIMID [Suspect]
     Indication: MULTIPLE MYELOMA
     Dosage: 10 MG, DAILY FOR 21 DAYS, ORAL ; 5 MG, DAILY FOR 21 DAYS, ORAL
     Route: 048
     Dates: start: 20070516, end: 20070801
  2. REVLIMID [Suspect]
     Indication: MULTIPLE MYELOMA
     Dosage: 10 MG, DAILY FOR 21 DAYS, ORAL ; 5 MG, DAILY FOR 21 DAYS, ORAL
     Route: 048
     Dates: start: 20070904

REACTIONS (1)
  - PYREXIA [None]
